FAERS Safety Report 6893037-4 (Version None)
Quarter: 2010Q3

REPORT INFORMATION
  Report Type: 
  Country: None (occurrence: None)
  Receive Date: 20100731
  Receipt Date: 20090209
  Transmission Date: 20110219
  Serious: Yes (Other)
  Sender: FDA-Public Use
  Company Number: US-PFIZER INC-2008158860

PATIENT
  Sex: Female
  Weight: 83.9 kg

DRUGS (1)
  1. METRONIDAZOLE [Suspect]
     Indication: AMOEBIASIS

REACTIONS (1)
  - DRUG INEFFECTIVE [None]
